FAERS Safety Report 18914653 (Version 1)
Quarter: 2021Q1

REPORT INFORMATION
  Report Type: Spontaneous
  Country: US (occurrence: US)
  Receive Date: 20210219
  Receipt Date: 20210219
  Transmission Date: 20210420
  Serious: No
  Sender: FDA-Public Use
  Company Number: US-BIOVITRUM-2021US1662

PATIENT
  Sex: Male
  Weight: 14.6 kg

DRUGS (9)
  1. SYNAGIS [Suspect]
     Active Substance: PALIVIZUMAB
     Indication: HYPOXIC-ISCHAEMIC ENCEPHALOPATHY
     Route: 030
  2. EPINEPHRINE HCL [Concomitant]
     Active Substance: EPINEPHRINE
  3. PULMOZYME [Concomitant]
     Active Substance: DORNASE ALFA
     Dosage: 1 MG/ML SOLUTION
  4. LEVETIRACETAM. [Concomitant]
     Active Substance: LEVETIRACETAM
  5. SYNAGIS [Suspect]
     Active Substance: PALIVIZUMAB
     Indication: RESPIRATORY FAILURE
  6. POLY?VI?SOL WITH IRON [Concomitant]
     Active Substance: IRON\VITAMINS
  7. ALBUTEROL SULFATE. [Concomitant]
     Active Substance: ALBUTEROL SULFATE
  8. DIAZEPAM. [Concomitant]
     Active Substance: DIAZEPAM
     Dosage: 100 % POWDER
  9. SYNAGIS [Suspect]
     Active Substance: PALIVIZUMAB
     Indication: GASTROSTOMY

REACTIONS (2)
  - Off label use [Unknown]
  - Weight decreased [Unknown]
